FAERS Safety Report 10333547 (Version 2)
Quarter: 2014Q4

REPORT INFORMATION
  Report Type: Spontaneous
  Country: IT (occurrence: IT)
  Receive Date: 20140722
  Receipt Date: 20141104
  Transmission Date: 20150528
  Serious: Yes (Hospitalization)
  Sender: FDA-Public Use
  Company Number: IT-BRISTOL-MYERS SQUIBB COMPANY-21212428

PATIENT
  Age: 90 Year
  Sex: Female

DRUGS (6)
  1. COUMADIN [Suspect]
     Active Substance: WARFARIN SODIUM
     Indication: ATRIAL FIBRILLATION
     Dosage: 1 DF = 1 UNIT
     Route: 048
     Dates: start: 20120619, end: 20140625
  2. MONOKET [Concomitant]
     Active Substance: ISOSORBIDE MONONITRATE
  3. LANOXIN [Concomitant]
     Active Substance: DIGOXIN
  4. LEVOXACIN [Interacting]
     Active Substance: LEVOFLOXACIN
     Indication: BRONCHITIS
     Route: 048
     Dates: start: 20140620, end: 20140625
  5. CARVEDILOL. [Concomitant]
     Active Substance: CARVEDILOL
  6. LASITONE [Concomitant]
     Active Substance: FUROSEMIDE\SPIRONOLACTONE

REACTIONS (2)
  - Hypocoagulable state [Recovered/Resolved]
  - Drug interaction [Unknown]

NARRATIVE: CASE EVENT DATE: 2014
